FAERS Safety Report 6338474-1 (Version None)
Quarter: 2009Q3

REPORT INFORMATION
  Report Type: 
  Country: None (occurrence: None)
  Receive Date: 20090901
  Receipt Date: 20090826
  Transmission Date: 20100115
  Serious: Yes (Life-Threatening, Hospitalization)
  Sender: FDA-Public Use
  Company Number: FABR-1000821

PATIENT
  Age: 53 Year
  Sex: Male
  Weight: 40 kg

DRUGS (8)
  1. FABRAZYME [Suspect]
     Indication: FABRY'S DISEASE
     Dosage: 70 MG, Q2W, INTRAVENOUS
     Route: 042
     Dates: start: 20071010
  2. LORAZEPAM [Concomitant]
  3. NEXIUM [Concomitant]
  4. MORPHINE SULFATE [Concomitant]
  5. CARBAMAZEPINE [Concomitant]
  6. DI-HYDAN (PHENYTOIN) [Concomitant]
  7. ATORVASTATIN CALCIUM [Concomitant]
  8. ARANESP [Concomitant]

REACTIONS (2)
  - LEFT VENTRICULAR HYPERTROPHY [None]
  - MYOCARDIAL INFARCTION [None]
